FAERS Safety Report 6817737-7 (Version None)
Quarter: 2010Q3

REPORT INFORMATION
  Report Type: 
  Country: None (occurrence: None)
  Receive Date: 20100706
  Receipt Date: 20100624
  Transmission Date: 20110219
  Serious: Yes (Life-Threatening, Hospitalization)
  Sender: FDA-Public Use
  Company Number: SG-PFIZER INC-2010076724

PATIENT
  Age: 45 Year
  Sex: Female
  Weight: 47 kg

DRUGS (9)
  1. VORICONAZOLE [Suspect]
     Indication: BRONCHOPULMONARY ASPERGILLOSIS
     Dosage: 300 MG, 2X/DAY
     Route: 042
     Dates: start: 20100611, end: 20100612
  2. VORICONAZOLE [Suspect]
     Dosage: 200 MG, 2X/DAY
     Route: 042
     Dates: start: 20100612, end: 20100617
  3. VORICONAZOLE [Suspect]
     Dosage: 300 MG, 2X/DAY
     Route: 048
     Dates: start: 20100618, end: 20100620
  4. BLINDED *NO SUBJECT DRUG [Suspect]
     Indication: BRONCHOPULMONARY ASPERGILLOSIS
     Dosage: UNK
     Route: 042
     Dates: start: 20100611, end: 20100611
  5. BLINDED *PLACEBO [Suspect]
     Indication: BRONCHOPULMONARY ASPERGILLOSIS
     Dosage: UNK
     Route: 042
     Dates: start: 20100611, end: 20100611
  6. BLINDED ANIDULAFUNGIN [Suspect]
     Indication: BRONCHOPULMONARY ASPERGILLOSIS
     Dosage: UNK
     Route: 042
     Dates: start: 20100611, end: 20100611
  7. BLINDED *NO SUBJECT DRUG [Suspect]
     Dosage: UNK
     Route: 042
     Dates: start: 20100612, end: 20100619
  8. BLINDED *PLACEBO [Suspect]
     Dosage: UNK
     Route: 042
     Dates: start: 20100612, end: 20100619
  9. BLINDED ANIDULAFUNGIN [Suspect]
     Dosage: UNK
     Route: 042
     Dates: start: 20100612, end: 20100619

REACTIONS (1)
  - PNEUMONITIS [None]
